FAERS Safety Report 4357811-0 (Version None)
Quarter: 2004Q2

REPORT INFORMATION
  Report Type: 
  Country: None (occurrence: None)
  Receive Date: 20040512
  Receipt Date: 20040427
  Transmission Date: 20050107
  Serious: Yes (Hospitalization, Disabling)
  Sender: FDA-Public Use
  Company Number: 2004-BP-01806BP

PATIENT
  Age: 54 Year
  Sex: Male
  Weight: 112.4 kg

DRUGS (1)
  1. MICARDIS HCT [Suspect]
     Indication: HYPERTENSION
     Dosage: SEE TEXT (SEE TEXT, 80/12.5 MG (1 TABLET QD)), PO
     Route: 048
     Dates: start: 20040121, end: 20040201

REACTIONS (13)
  - ASTHENIA [None]
  - BLOOD CREATINE INCREASED [None]
  - BLOOD UREA INCREASED [None]
  - CHILLS [None]
  - DIZZINESS [None]
  - DRUG HYPERSENSITIVITY [None]
  - HAEMOGLOBIN DECREASED [None]
  - HEPATIC ENZYME INCREASED [None]
  - HYPOTENSION [None]
  - IMPAIRED WORK ABILITY [None]
  - NEUTROPENIA [None]
  - THROMBOCYTOPENIA [None]
  - TREMOR [None]
